FAERS Safety Report 20539114 (Version 1)
Quarter: 2022Q1

REPORT INFORMATION
  Report Type: Spontaneous
  Country: DE (occurrence: DE)
  Receive Date: 20220302
  Receipt Date: 20220302
  Transmission Date: 20220424
  Serious: Yes (Other)
  Sender: FDA-Public Use
  Company Number: DE-JNJFOC-20210644608

PATIENT
  Age: 55 Year
  Sex: Female
  Weight: 54.5 kg

DRUGS (10)
  1. DARZALEX [Suspect]
     Active Substance: DARATUMUMAB
     Indication: Plasma cell myeloma
     Dosage: DAY-1,2 FIRST CYCLE
     Route: 042
     Dates: start: 20210617, end: 20210617
  2. CARFILZOMIB [Suspect]
     Active Substance: CARFILZOMIB
     Indication: Plasma cell myeloma
     Dosage: DAY-1,2 OF CYCLE-1
     Route: 065
     Dates: start: 20210616
  3. DEXAMETHASONE [Suspect]
     Active Substance: DEXAMETHASONE
     Indication: Plasma cell myeloma
     Dosage: DAY-1,2,8,9,15,16
     Route: 048
     Dates: start: 20210616
  4. ZOFRAN [Concomitant]
     Active Substance: ONDANSETRON HYDROCHLORIDE
     Indication: Antiemetic supportive care
     Dosage: 1-0-1, ON DAYS- 1,2,8,9,15,16
     Route: 048
  5. ALLOPURINOL [Concomitant]
     Active Substance: ALLOPURINOL
     Indication: Blood uric acid increased
     Route: 048
  6. CLEMASTINE [Concomitant]
     Active Substance: CLEMASTINE
     Dosage: 0.5 HOUR BEFORE CHEMOTHERAPY
     Route: 042
  7. RANITIDINE HYDROCHLORIDE [Concomitant]
     Active Substance: RANITIDINE HYDROCHLORIDE
     Dosage: 0.5 HOUR BEFORE CHEMOTHERAPY
     Route: 042
  8. PREDNISOLONE SODIUM SUCCINATE [Concomitant]
     Active Substance: PREDNISOLONE SODIUM SUCCINATE
     Dosage: 0.5 HOUR BEFORE CHEMOTHERAPY
     Route: 042
  9. ACETAMINOPHEN [Concomitant]
     Active Substance: ACETAMINOPHEN
     Indication: Influenza like illness
     Dosage: 1 HOUR BEFORE CHEMOTHERAPY
     Route: 048
  10. COVID-19 VACCINE [Concomitant]
     Dosage: 2 DOSES, LAST DOSE ON 27-MAY-2021
     Route: 065

REACTIONS (11)
  - Infusion related reaction [Recovered/Resolved]
  - Headache [Recovered/Resolved]
  - Atrial fibrillation [Unknown]
  - Polyneuropathy [Unknown]
  - Laryngeal oedema [Recovered/Resolved]
  - Eye movement disorder [Recovered/Resolved]
  - Rhinitis [Recovered/Resolved]
  - Chest discomfort [Recovered/Resolved]
  - Musculoskeletal chest pain [Recovered/Resolved]
  - Diarrhoea [Unknown]
  - Fibrin D dimer increased [Unknown]

NARRATIVE: CASE EVENT DATE: 20210617
